FAERS Safety Report 4501668-1 (Version None)
Quarter: 2004Q4

REPORT INFORMATION
  Report Type: 
  Country: None (occurrence: None)
  Receive Date: 20041116
  Receipt Date: 20041104
  Transmission Date: 20050328
  Serious: Yes (Disabling)
  Sender: FDA-Public Use
  Company Number: US-JNJFOC-20041101479

PATIENT
  Sex: Female

DRUGS (3)
  1. REMICADE [Suspect]
     Indication: RHEUMATOID ARTHRITIS
     Route: 042
  2. THALOMID [Suspect]
     Indication: RHEUMATOID ARTHRITIS
  3. THALOMID [Suspect]

REACTIONS (3)
  - CUTANEOUS LUPUS ERYTHEMATOSUS [None]
  - DRUG INTERACTION [None]
  - PERIPHERAL SENSORY NEUROPATHY [None]
